FAERS Safety Report 12316970 (Version 6)
Quarter: 2017Q1

REPORT INFORMATION
  Report Type: Spontaneous
  Country: US (occurrence: US)
  Receive Date: 20160429
  Receipt Date: 20170126
  Transmission Date: 20170428
  Serious: Yes (Congenital Anomaly, Other)
  Sender: FDA-Public Use
  Company Number: PHEH2016US010430

PATIENT
  Sex: Female

DRUGS (2)
  1. ZOFRAN [Suspect]
     Active Substance: ONDANSETRON HYDROCHLORIDE
     Indication: FOETAL EXPOSURE DURING PREGNANCY
     Dosage: UNK
     Route: 064
  2. ZOFRAN ODT [Suspect]
     Active Substance: ONDANSETRON HYDROCHLORIDE
     Indication: FOETAL EXPOSURE DURING PREGNANCY
     Dosage: UNK
     Route: 064

REACTIONS (14)
  - Urinary tract infection [Unknown]
  - Anxiety [Unknown]
  - Congenital vesicoureteric reflux [Unknown]
  - Congenital anomaly [Unknown]
  - Hepatitis [Unknown]
  - Anhedonia [Unknown]
  - Pyelonephritis [Unknown]
  - Pain [Unknown]
  - Single functional kidney [Unknown]
  - Congenital hydronephrosis [Unknown]
  - Emotional distress [Unknown]
  - Injury [Unknown]
  - Foetal exposure during pregnancy [Unknown]
  - Diarrhoea haemorrhagic [Unknown]
